FAERS Safety Report 4943762-7 (Version None)
Quarter: 2006Q1

REPORT INFORMATION
  Report Type: 
  Country: None (occurrence: None)
  Receive Date: 20060314
  Receipt Date: 20060303
  Transmission Date: 20060701
  Serious: Yes (Other)
  Sender: FDA-Public Use
  Company Number: US-MERCK-0603USA00739

PATIENT
  Age: 48 Year
  Sex: Female

DRUGS (2)
  1. PRIMAXIN [Suspect]
     Indication: ARTERIOVENOUS GRAFT SITE INFECTION
     Route: 042
     Dates: start: 20060101, end: 20060101
  2. [THERAPY UNSPECIFIED] [Concomitant]
     Route: 065

REACTIONS (3)
  - EPILEPSY [None]
  - MYOCLONIC EPILEPSY [None]
  - UNRESPONSIVE TO PAIN STIMULI [None]
